FAERS Safety Report 4536560-X (Version None)
Quarter: 2004Q4

REPORT INFORMATION
  Report Type: 
  Country: None (occurrence: None)
  Receive Date: 20041223
  Receipt Date: 20040622
  Transmission Date: 20050328
  Serious: No
  Sender: FDA-Public Use
  Company Number: US-GLAXOSMITHKLINE-A0515592A

PATIENT
  Sex: Female

DRUGS (3)
  1. TAGAMET [Suspect]
     Indication: ILL-DEFINED DISORDER
     Dosage: 400MG UNKNOWN
     Route: 048
  2. TAGAMET [Suspect]
     Route: 048
  3. NO CONCURRENT MEDICATION [Concomitant]

REACTIONS (1)
  - ADVERSE EVENT [None]
